FAERS Safety Report 7554645 (Version 6)
Quarter: 2015Q1

REPORT INFORMATION
  Report Type: Report from Study
  Country: JP (occurrence: JP)
  Receive Date: 20100826
  Receipt Date: 20150123
  Transmission Date: 20150721
  Serious: Yes (Hospitalization)
  Sender: FDA-Public Use
  Company Number: PHHO2010JP04236

PATIENT
  Age: 49 Year
  Sex: Male
  Weight: 69 kg

DRUGS (14)
  1. BLINDED ENALAPRIL [Suspect]
     Active Substance: ENALAPRIL
     Dosage: NO TREATMENT
  2. BLINDED NO TREATMENT RECEIVED [Suspect]
     Active Substance: UNSPECIFIED INGREDIENT
     Dosage: NO TREATMENT
  3. ZYLORIC [Concomitant]
     Active Substance: ALLOPURINOL
  4. ANCARON [Concomitant]
     Active Substance: AMIODARONE HYDROCHLORIDE
  5. FLUTIDE DISKUS [Concomitant]
     Active Substance: FLUTICASONE PROPIONATE
  6. NEUQUINON [Concomitant]
     Active Substance: UBIDECARENONE
  7. BLINDED ALISKIREN [Suspect]
     Active Substance: ALISKIREN
     Dosage: NO TREATMENT
  8. ALISKIREN [Suspect]
     Active Substance: ALISKIREN
     Indication: CARDIAC FAILURE CHRONIC
     Dosage: 150 MG, QD
     Dates: start: 20100206, end: 20100817
  9. ACARDI [Concomitant]
  10. LASIX [Concomitant]
     Active Substance: FUROSEMIDE
  11. WARFARIN [Concomitant]
     Active Substance: WARFARIN
  12. ARTIST [Concomitant]
     Active Substance: CARVEDILOL
  13. LANIRAPID [Concomitant]
     Active Substance: METILDIGOXIN
  14. ALINAMIN [Concomitant]

REACTIONS (20)
  - Dyspnoea exertional [Recovered/Resolved]
  - Bundle branch block left [Recovered/Resolved]
  - Ejection fraction decreased [Recovered/Resolved]
  - Pulmonary oedema [Recovered/Resolved]
  - Pyrexia [Recovered/Resolved]
  - Orthopnoea [Recovered/Resolved]
  - Hyperhidrosis [Recovered/Resolved]
  - Endotracheal intubation [Recovered/Resolved]
  - Post procedural haematoma [Recovered/Resolved]
  - Pleural effusion [Recovered/Resolved]
  - White blood cell count increased [Recovered/Resolved]
  - Nocturnal dyspnoea [Recovered/Resolved]
  - Renal impairment [Recovered/Resolved]
  - Ventricular extrasystoles [Recovered/Resolved]
  - Staphylococcal infection [Recovered/Resolved]
  - Cardiac failure [Recovered/Resolved]
  - Cardiomegaly [Recovered/Resolved]
  - Pneumonia [Recovered/Resolved]
  - Cough [Recovered/Resolved]
  - Hepatic function abnormal [Recovered/Resolved]

NARRATIVE: CASE EVENT DATE: 20100309
